FAERS Safety Report 18683378 (Version 11)
Quarter: 2025Q2

REPORT INFORMATION
  Report Type: Report from Study
  Country: CA (occurrence: CA)
  Receive Date: 20201230
  Receipt Date: 20250616
  Transmission Date: 20250717
  Serious: Yes (Hospitalization, Other)
  Sender: TAKEDA
  Company Number: CA-TAKEDA-2020TUS060685

PATIENT
  Age: 30 Year
  Sex: Female

DRUGS (26)
  1. VEDOLIZUMAB [Suspect]
     Active Substance: VEDOLIZUMAB
     Indication: Crohn^s disease
  2. VEDOLIZUMAB [Suspect]
     Active Substance: VEDOLIZUMAB
  3. VEDOLIZUMAB [Suspect]
     Active Substance: VEDOLIZUMAB
     Dosage: 300 MILLIGRAM, Q4WEEKS
     Dates: start: 20210511
  4. VEDOLIZUMAB [Suspect]
     Active Substance: VEDOLIZUMAB
     Dosage: 300 MILLIGRAM, Q4WEEKS
  5. VEDOLIZUMAB [Suspect]
     Active Substance: VEDOLIZUMAB
     Dosage: 300 MILLIGRAM, Q4WEEKS
  6. VEDOLIZUMAB [Suspect]
     Active Substance: VEDOLIZUMAB
     Dosage: 300 MILLIGRAM, Q4WEEKS
  7. VEDOLIZUMAB [Suspect]
     Active Substance: VEDOLIZUMAB
     Dosage: 300 MILLIGRAM, Q4WEEKS
  8. VEDOLIZUMAB [Suspect]
     Active Substance: VEDOLIZUMAB
     Dosage: 300 MILLIGRAM, Q4WEEKS
  9. VEDOLIZUMAB [Suspect]
     Active Substance: VEDOLIZUMAB
     Dosage: 300 MILLIGRAM, Q4WEEKS
  10. MESALAMINE [Concomitant]
     Active Substance: MESALAMINE
  11. METHOTREXATE [Concomitant]
     Active Substance: METHOTREXATE
  12. SERTRALINE [Concomitant]
     Active Substance: SERTRALINE HYDROCHLORIDE
  13. OMEGA 3 [Concomitant]
     Active Substance: CAPSAICIN
  14. CRANBERRY [Concomitant]
     Active Substance: CRANBERRY
  15. FERROUS SULFATE [Concomitant]
     Active Substance: FERROUS SULFATE
  16. MESALAMINE [Concomitant]
     Active Substance: MESALAMINE
  17. SOLU-MEDROL [Concomitant]
     Active Substance: METHYLPREDNISOLONE SODIUM SUCCINATE
  18. VITAMIN B12 [Concomitant]
     Active Substance: CYANOCOBALAMIN
  19. VITAMIN D [Concomitant]
     Active Substance: VITAMIN D NOS
  20. DESMOPRESSIN [Concomitant]
     Active Substance: DESMOPRESSIN
  21. ATIVAN [Concomitant]
     Active Substance: LORAZEPAM
  22. ZOPICLONE [Concomitant]
     Active Substance: ZOPICLONE
  23. METHADONE [Concomitant]
     Active Substance: METHADONE HYDROCHLORIDE
  24. METHADONE [Concomitant]
     Active Substance: METHADONE HYDROCHLORIDE
     Dates: start: 20250513, end: 20250602
  25. ENTOCORT [Concomitant]
     Active Substance: BUDESONIDE
  26. VANCOMYCIN [Concomitant]
     Active Substance: VANCOMYCIN

REACTIONS (10)
  - Gastrointestinal viral infection [Unknown]
  - Crohn^s disease [Not Recovered/Not Resolved]
  - Abscess intestinal [Not Recovered/Not Resolved]
  - Appendicitis [Unknown]
  - Volvulus of small bowel [Unknown]
  - Diarrhoea [Unknown]
  - Abdominal pain upper [Unknown]
  - Therapeutic response decreased [Unknown]
  - Off label use [Unknown]
  - Vomiting [Unknown]

NARRATIVE: CASE EVENT DATE: 20210511
